FAERS Safety Report 9584389 (Version 1)
Quarter: 2013Q4

REPORT INFORMATION
  Report Type: Spontaneous
  Country: US (occurrence: US)
  Receive Date: 20131002
  Receipt Date: 20131002
  Transmission Date: 20140711
  Serious: No
  Sender: FDA-Public Use
  Company Number: US-AMGEN-USASP2013053314

PATIENT
  Age: 50 Year
  Sex: Female
  Weight: 73.47 kg

DRUGS (8)
  1. ENBREL [Suspect]
     Indication: PRODUCT USED FOR UNKNOWN INDICATION
     Dosage: 50 MG, QWK
     Route: 058
  2. PROPRANOLOL [Concomitant]
     Dosage: 40 MG, UNK
  3. PRAVASTATIN [Concomitant]
     Dosage: 40 MG, UNK
  4. PRILOSEC                           /00661201/ [Concomitant]
     Dosage: 20 MG, UNK
  5. FOLIC ACID [Concomitant]
     Dosage: UNK
  6. VITAMIN B12                        /00056201/ [Concomitant]
     Dosage: 1000 MUG, UNK
  7. MAGNESIUM [Concomitant]
     Dosage: 30 MG, UNK
  8. VITAMIN D3 [Concomitant]
     Dosage: 4000 UNIT, UNK

REACTIONS (2)
  - Neck pain [Unknown]
  - Spinal pain [Unknown]
